FAERS Safety Report 10966175 (Version 1)
Quarter: 2015Q1

REPORT INFORMATION
  Report Type: Spontaneous
  Country: US (occurrence: None)
  Receive Date: 20150226
  Receipt Date: 20150226
  Transmission Date: 20150721
  Serious: No
  Sender: FDA-Public Use
  Company Number: TPA2009A03331

PATIENT
  Age: 9 Decade
  Sex: Male

DRUGS (2)
  1. ULORIC [Suspect]
     Active Substance: FEBUXOSTAT
     Indication: GOUT
     Route: 048
     Dates: start: 200910
  2. UNSPECIFIED MEDICATIONS (ALL OTHER THERAPEUTIC PRODUCTS) [Concomitant]
     Active Substance: UNSPECIFIED INGREDIENT

REACTIONS (2)
  - Lethargy [None]
  - Pain [None]

NARRATIVE: CASE EVENT DATE: 200910
